FAERS Safety Report 5404354-9 (Version None)
Quarter: 2007Q3

REPORT INFORMATION
  Report Type: 
  Country: None (occurrence: None)
  Receive Date: 20070802
  Receipt Date: 20070724
  Transmission Date: 20080115
  Serious: Yes (Hospitalization, Other)
  Sender: FDA-Public Use
  Company Number: BR-PFIZER INC-2007034686

PATIENT
  Age: 80 Year
  Sex: Female

DRUGS (6)
  1. LIPITOR [Suspect]
     Indication: DYSLIPIDAEMIA
     Route: 048
  2. ATENOLOL [Concomitant]
     Dosage: DAILY DOSE:20MG
     Route: 048
  3. ASPIRIN [Concomitant]
     Dosage: DAILY DOSE:100MG
     Route: 048
     Dates: start: 20020101
  4. MULTIVITAMIN [Concomitant]
     Route: 048
     Dates: start: 20000101
  5. EUTHYROX [Concomitant]
     Dosage: DAILY DOSE:100MCG
     Route: 048
  6. ISCOVER [Concomitant]
     Dosage: DAILY DOSE:75MG
     Route: 048

REACTIONS (5)
  - ANGIOPATHY [None]
  - ARRHYTHMIA [None]
  - CHEST PAIN [None]
  - FATIGUE [None]
  - MALAISE [None]
